FAERS Safety Report 9227760 (Version 1)
Quarter: 2013Q2

REPORT INFORMATION
  Report Type: Spontaneous
  Country: US (occurrence: US)
  Receive Date: 20130412
  Receipt Date: 20130412
  Transmission Date: 20140414
  Serious: No
  Sender: FDA-Public Use
  Company Number: US-MYLANLABS-2012S1013631

PATIENT
  Age: 63 Year
  Sex: Male

DRUGS (3)
  1. DILTIAZEM HCL EXTENDED RELEASE CAPSULES, USP [Suspect]
     Indication: HYPERTENSION
     Route: 048
     Dates: start: 201202
  2. LISINOPRIL [Concomitant]
  3. ASA [Concomitant]

REACTIONS (4)
  - Drug ineffective [Recovered/Resolved]
  - Blood pressure increased [Recovered/Resolved]
  - Headache [Recovered/Resolved]
  - Medication residue present [Recovered/Resolved]
